FAERS Safety Report 7117693-0 (Version None)
Quarter: 2010Q4

REPORT INFORMATION
  Report Type: 
  Country: None (occurrence: None)
  Receive Date: 20101123
  Receipt Date: 20101115
  Transmission Date: 20110411
  Serious: Yes (Other)
  Sender: FDA-Public Use
  Company Number: US-BIOGENIDEC-2010BI039936

PATIENT
  Age: 52 Year
  Sex: Male

DRUGS (1)
  1. AVONEX [Suspect]
     Indication: MULTIPLE SCLEROSIS
     Route: 030
     Dates: start: 20100909, end: 20101101

REACTIONS (4)
  - AMYOTROPHIC LATERAL SCLEROSIS [None]
  - HYPERTENSION [None]
  - MUSCULAR WEAKNESS [None]
  - WEIGHT DECREASED [None]
